FAERS Safety Report 4909009-2 (Version None)
Quarter: 2006Q1

REPORT INFORMATION
  Report Type: 
  Country: None (occurrence: None)
  Receive Date: 20060209
  Receipt Date: 20060120
  Transmission Date: 20060701
  Serious: Yes (Hospitalization)
  Sender: FDA-Public Use
  Company Number: US_0511123621

PATIENT
  Sex: Female
  Weight: 66.4 kg

DRUGS (13)
  1. ZYPREXA [Suspect]
     Indication: ANXIETY
     Dosage: SEE IMAGE
     Route: 048
     Dates: start: 19980323, end: 20010116
  2. ZYPREXA ZYDIS [Suspect]
     Indication: ANXIETY
     Dosage: SEE IMAGE
     Dates: start: 19980323, end: 19980501
  3. ZYPREXA ZYDIS [Suspect]
     Indication: ANXIETY
     Dosage: SEE IMAGE
     Dates: start: 19990628, end: 20000303
  4. ZYPREXA ZYDIS [Suspect]
     Indication: ANXIETY
     Dosage: SEE IMAGE
     Dates: end: 20010116
  5. ZYPREXA ZYDIS [Suspect]
     Indication: ANXIETY
     Dosage: SEE IMAGE
     Dates: start: 20000303, end: 20030616
  6. . [Concomitant]
  7. PROZAC [Suspect]
     Dosage: SEE IMAGE
     Route: 048
  8. LITHIUM CARBONATE [Concomitant]
  9. NEURONTIN [Concomitant]
  10. EFFEXOR [Concomitant]
  11. DEPAKOTE [Concomitant]
  12. BENADRYL ^PARKE DAVIS^ /ISR/(DIPHENHYDRAMINE HYDROCHLORIDE) [Concomitant]
  13. TEGRETOL [Concomitant]

REACTIONS (35)
  - ALOPECIA [None]
  - AMNESIA [None]
  - BLOOD PRESSURE FLUCTUATION [None]
  - COUGH [None]
  - DEHYDRATION [None]
  - DIABETES MELLITUS [None]
  - DIZZINESS POSTURAL [None]
  - DYSPHONIA [None]
  - GASTRIC ULCER [None]
  - HAEMATEMESIS [None]
  - HAEMATOCHEZIA [None]
  - HEPATIC FUNCTION ABNORMAL [None]
  - HIATUS HERNIA [None]
  - HYDRONEPHROSIS [None]
  - HYPOACUSIS [None]
  - JAUNDICE [None]
  - LETHARGY [None]
  - MENOMETRORRHAGIA [None]
  - NASAL CONGESTION [None]
  - NEPHROLITHIASIS [None]
  - OSTEOARTHRITIS [None]
  - OSTEOPOROSIS [None]
  - PYREXIA [None]
  - RENAL IMPAIRMENT [None]
  - RENAL MASS [None]
  - RHEUMATOID ARTHRITIS [None]
  - RHINORRHOEA [None]
  - SEDATION [None]
  - SOMNOLENCE [None]
  - STRESS ULCER [None]
  - SUICIDE ATTEMPT [None]
  - VISION BLURRED [None]
  - VOMITING [None]
  - WEIGHT DECREASED [None]
  - WEIGHT INCREASED [None]
